FAERS Safety Report 5248090-0 (Version None)
Quarter: 2007Q1

REPORT INFORMATION
  Report Type: 
  Country: None (occurrence: None)
  Receive Date: 20070227
  Receipt Date: 20070222
  Transmission Date: 20070707
  Serious: Yes (Hospitalization)
  Sender: FDA-Public Use
  Company Number: US-GLAXOSMITHKLINE-A0640598A

PATIENT
  Age: 38 Year
  Sex: Female

DRUGS (9)
  1. WELLBUTRIN [Suspect]
     Indication: DEPRESSION
     Dosage: 300MG PER DAY
     Route: 048
  2. CARDIZEM [Suspect]
     Indication: HEART RATE INCREASED
     Dosage: 120MG PER DAY
     Route: 048
     Dates: start: 20070220, end: 20070222
  3. NEXIUM [Suspect]
     Dosage: 40MG PER DAY
     Route: 048
     Dates: start: 20061201, end: 20070201
  4. NEXIUM [Concomitant]
  5. PROZAC [Concomitant]
  6. ADVAIR DISKUS 100/50 [Concomitant]
  7. RHINOCORT [Concomitant]
  8. ALBUTEROL [Concomitant]
  9. CARDIZEM [Concomitant]

REACTIONS (4)
  - BLOOD PRESSURE DECREASED [None]
  - DYSPEPSIA [None]
  - HEADACHE [None]
  - HEART RATE INCREASED [None]
